FAERS Safety Report 16666476 (Version 1)
Quarter: 2019Q3

REPORT INFORMATION
  Report Type: Spontaneous
  Country: FR (occurrence: FR)
  Receive Date: 20190805
  Receipt Date: 20190805
  Transmission Date: 20191004
  Serious: Yes (Hospitalization)
  Sender: FDA-Public Use
  Company Number: FR-TEVA-2019-FR-1087573

PATIENT
  Age: 68 Year
  Sex: Male
  Weight: 52 kg

DRUGS (11)
  1. CISPLATINE [Suspect]
     Active Substance: CISPLATIN
     Indication: BRONCHIAL CARCINOMA
     Route: 042
     Dates: start: 20190527, end: 20190527
  2. NAVELBINE [Suspect]
     Active Substance: VINORELBINE TARTRATE
     Indication: BRONCHIAL CARCINOMA
     Route: 042
     Dates: start: 20190527, end: 20190527
  3. OGASTORO 30 MG, COMPRIME ORODISPERSIBLE [Concomitant]
  4. FENTANYL. [Concomitant]
     Active Substance: FENTANYL
  5. ACTISKENAN 20 MG, GELULE [Concomitant]
     Active Substance: MORPHINE SULFATE
  6. KARDEGIC [Concomitant]
     Active Substance: ASPIRIN DL-LYSINE
  7. PERINDOPRIL [Suspect]
     Active Substance: PERINDOPRIL
     Indication: HYPERTENSION
     Dosage: 4 MILLIGRAM
     Route: 048
     Dates: end: 20190604
  8. BISOPROLOL (FUMARATE ACIDE DE) [Concomitant]
     Active Substance: BISOPROLOL FUMARATE
  9. ZOLPIDEM [Concomitant]
     Active Substance: ZOLPIDEM TARTRATE
  10. MACROGOL (DISTEARATE DE) [Concomitant]
     Active Substance: POLYETHYLENE GLYCOLS
  11. DOLIPRANE [Concomitant]
     Active Substance: ACETAMINOPHEN

REACTIONS (3)
  - Neutropenia [Recovered/Resolved]
  - Acute kidney injury [Recovered/Resolved]
  - Pyrexia [Recovered/Resolved]

NARRATIVE: CASE EVENT DATE: 20190603
